FAERS Safety Report 10334472 (Version 1)
Quarter: 2014Q3

REPORT INFORMATION
  Report Type: Spontaneous
  Country: DE (occurrence: DE)
  Receive Date: 20140723
  Receipt Date: 20140723
  Transmission Date: 20150326
  Serious: Yes (Other)
  Sender: FDA-Public Use
  Company Number: DE-JNJFOC-20140713997

PATIENT
  Sex: Male

DRUGS (5)
  1. XARELTO [Suspect]
     Active Substance: RIVAROXABAN
     Indication: PRODUCT USED FOR UNKNOWN INDICATION
     Route: 048
     Dates: start: 20130719, end: 201402
  2. DIGITALIS [Concomitant]
     Active Substance: DIGITALIS
     Route: 065
     Dates: start: 201307
  3. TROPICAMIDE. [Concomitant]
     Active Substance: TROPICAMIDE
     Route: 065
     Dates: start: 20130619
  4. SODIUM SELENITE [Concomitant]
     Active Substance: SODIUM SELENITE
     Route: 065
  5. BISOPROLOL [Concomitant]
     Active Substance: BISOPROLOL
     Route: 065
     Dates: start: 201407

REACTIONS (15)
  - Pruritus [Recovered/Resolved]
  - Oedema peripheral [Recovered/Resolved]
  - Suicidal ideation [Recovered/Resolved]
  - Flushing [Recovered/Resolved]
  - Rash [Recovered/Resolved]
  - Diarrhoea [Recovered/Resolved]
  - Sleep disorder [Recovered/Resolved]
  - Blood pressure decreased [Recovered/Resolved]
  - Performance status decreased [Recovered/Resolved]
  - Headache [Recovered/Resolved]
  - Dizziness [Recovered/Resolved]
  - Heart rate irregular [Recovered/Resolved]
  - Dysuria [Recovered/Resolved]
  - Depressed mood [Recovered/Resolved]
  - Limb discomfort [Recovered/Resolved]

NARRATIVE: CASE EVENT DATE: 2013
